FAERS Safety Report 25093197 (Version 1)
Quarter: 2025Q1

REPORT INFORMATION
  Report Type: Spontaneous
  Country: US (occurrence: US)
  Receive Date: 20250319
  Receipt Date: 20250319
  Transmission Date: 20250408
  Serious: No
  Sender: SANDOZ
  Company Number: US-SANDOZ-SDZ2025US016561

PATIENT
  Sex: Female

DRUGS (2)
  1. DOTTI [Suspect]
     Active Substance: ESTRADIOL
     Indication: Product used for unknown indication
     Route: 065
  2. VIVELLE-DOT [Suspect]
     Active Substance: ESTRADIOL
     Indication: Product used for unknown indication
     Route: 065

REACTIONS (7)
  - Adnexa uteri pain [Unknown]
  - Anxiety [Unknown]
  - Hot flush [Unknown]
  - Breast pain [Unknown]
  - Insomnia [Unknown]
  - Product availability issue [Unknown]
  - Product substitution issue [Unknown]
